FAERS Safety Report 9933182 (Version 1)
Quarter: 2014Q1

REPORT INFORMATION
  Report Type: Spontaneous
  Country: US (occurrence: US)
  Receive Date: 20140228
  Receipt Date: 20140228
  Transmission Date: 20141002
  Serious: No
  Sender: FDA-Public Use
  Company Number: US-GLAXOSMITHKLINE-A1053294A

PATIENT
  Age: 34 Year
  Sex: Female

DRUGS (2)
  1. LAMICTAL [Suspect]
     Indication: MOOD SWINGS
     Dosage: 25MG PER DAY
     Route: 065
     Dates: start: 201102, end: 201307
  2. CONTRACEPTIVE IMPLANT [Concomitant]
     Indication: CONTRACEPTION
     Route: 065

REACTIONS (3)
  - Menstrual disorder [Recovering/Resolving]
  - Menorrhagia [Recovering/Resolving]
  - Metrorrhagia [Recovering/Resolving]
